FAERS Safety Report 11404447 (Version 1)
Quarter: 2015Q3

REPORT INFORMATION
  Report Type: Spontaneous
  Country: JP (occurrence: JP)
  Receive Date: 20150821
  Receipt Date: 20150821
  Transmission Date: 20151125
  Serious: Yes (Other)
  Sender: FDA-Public Use
  Company Number: JP-PFIZER INC-2015274706

PATIENT
  Age: 18 Year
  Sex: Female
  Weight: 37 kg

DRUGS (3)
  1. PROVERA [Suspect]
     Active Substance: MEDROXYPROGESTERONE ACETATE
     Indication: AMENORRHOEA
     Dosage: 2.5 MG, 1X/DAY
     Route: 048
     Dates: start: 20150625, end: 20150626
  2. PREMARIN [Suspect]
     Active Substance: ESTROGENS, CONJUGATED
     Indication: AMENORRHOEA
     Dosage: 0.625 MG, 1X/DAY
     Route: 048
     Dates: start: 20150615, end: 20150626
  3. REFLEX [Suspect]
     Active Substance: MIRTAZAPINE
     Indication: EATING DISORDER
     Dosage: 7.5 MG, 1X/DAY
     Route: 048
     Dates: start: 20150615, end: 20150803

REACTIONS (5)
  - Loss of consciousness [Recovered/Resolved]
  - Vomiting [Recovered/Resolved]
  - Product use issue [Unknown]
  - Dizziness [Recovered/Resolved]
  - Seizure [Recovered/Resolved]

NARRATIVE: CASE EVENT DATE: 20150615
